FAERS Safety Report 20336158 (Version 1)
Quarter: 2022Q1

REPORT INFORMATION
  Report Type: Spontaneous
  Country: US (occurrence: US)
  Receive Date: 20220114
  Receipt Date: 20220114
  Transmission Date: 20220423
  Serious: No
  Sender: FDA-Public Use
  Company Number: US-PFIZER INC-2021539822

PATIENT
  Age: 70 Year
  Sex: Male
  Weight: 80.74 kg

DRUGS (1)
  1. LORAZEPAM [Suspect]
     Active Substance: LORAZEPAM
     Dosage: UNK

REACTIONS (3)
  - Mental disorder [Unknown]
  - Feeling abnormal [Unknown]
  - Drug hypersensitivity [Unknown]
